FAERS Safety Report 8299842-4 (Version None)
Quarter: 2012Q2

REPORT INFORMATION
  Report Type: 
  Country: None (occurrence: None)
  Receive Date: 20120419
  Receipt Date: 20120410
  Transmission Date: 20120825
  Serious: Yes (Life-Threatening)
  Sender: FDA-Public Use
  Company Number: JP-BAXTER-2012BAX002375

PATIENT
  Sex: Female

DRUGS (11)
  1. THERARUBICIN                       /00963101/ [Suspect]
     Indication: MYCOSIS FUNGOIDES
     Route: 041
     Dates: start: 20120221, end: 20120221
  2. PREDNISOLONE [Concomitant]
     Indication: MYCOSIS FUNGOIDES
     Route: 048
     Dates: start: 20120221, end: 20120221
  3. LANSOPRAZOLE [Concomitant]
     Indication: MYCOSIS FUNGOIDES
     Route: 048
     Dates: start: 20120221, end: 20120226
  4. COTRIM [Concomitant]
     Indication: INFECTION PROPHYLAXIS
     Route: 048
     Dates: start: 20120221, end: 20120227
  5. CYCLOPHOSPHAMIDE [Suspect]
     Route: 041
     Dates: start: 20120221, end: 20120221
  6. MAGNESIUM OXIDE [Concomitant]
     Indication: MYCOSIS FUNGOIDES
     Route: 048
     Dates: start: 20120221, end: 20120226
  7. ONCOVIN [Suspect]
     Indication: MYCOSIS FUNGOIDES
     Route: 042
     Dates: start: 20120221, end: 20120221
  8. KYTRIL [Concomitant]
     Indication: MYCOSIS FUNGOIDES
     Route: 041
     Dates: start: 20120221, end: 20120221
  9. EMEND [Concomitant]
     Indication: MYCOSIS FUNGOIDES
     Route: 048
     Dates: start: 20120221, end: 20120223
  10. CYCLOPHOSPHAMIDE [Suspect]
     Indication: MYCOSIS FUNGOIDES
     Route: 041
     Dates: start: 20120221, end: 20120221
  11. ALLOPURINOL [Concomitant]
     Indication: MYCOSIS FUNGOIDES
     Route: 048
     Dates: start: 20120221, end: 20120226

REACTIONS (3)
  - SEPSIS [None]
  - PANCYTOPENIA [None]
  - PNEUMONIA [None]
